FAERS Safety Report 15255286 (Version 2)
Quarter: 2018Q4

REPORT INFORMATION
  Report Type: Spontaneous
  Country: US (occurrence: US)
  Receive Date: 20180808
  Receipt Date: 20181217
  Transmission Date: 20190204
  Serious: Yes (Other)
  Sender: FDA-Public Use
  Company Number: US-SA-2018SA210222

PATIENT
  Age: 62 Year
  Sex: Female
  Weight: 82.1 kg

DRUGS (6)
  1. TAXOTERE [Suspect]
     Active Substance: DOCETAXEL
     Dosage: 88-120 MG
     Route: 042
     Dates: start: 20110216, end: 20110216
  2. PAXIL [PIROXICAM] [Concomitant]
  3. ESTRACE [Concomitant]
     Active Substance: ESTRADIOL
  4. GEMCITABINE [Concomitant]
     Active Substance: GEMCITABINE\GEMCITABINE HYDROCHLORIDE
  5. GEMZAR [Concomitant]
     Active Substance: GEMCITABINE HYDROCHLORIDE
  6. TAXOTERE [Suspect]
     Active Substance: DOCETAXEL
     Dosage: 88-120 MG
     Route: 042
     Dates: start: 20110427, end: 20110427

REACTIONS (2)
  - Psychological trauma [Unknown]
  - Alopecia [Recovering/Resolving]

NARRATIVE: CASE EVENT DATE: 20110306
